FAERS Safety Report 4933055-6 (Version None)
Quarter: 2006Q1

REPORT INFORMATION
  Report Type: 
  Country: None (occurrence: None)
  Receive Date: 20060301
  Receipt Date: 20060214
  Transmission Date: 20060701
  Serious: Yes (Other)
  Sender: FDA-Public Use
  Company Number: 2006S1001338

PATIENT
  Age: 38 Year
  Sex: Male
  Weight: 104.3273 kg

DRUGS (1)
  1. EXTENDED PHENYTOIN SODIUM [Suspect]
     Indication: CONVULSION
     Dosage: 200 MG;BID;ORAL
     Route: 048
     Dates: start: 20051101

REACTIONS (7)
  - CONFUSIONAL STATE [None]
  - CONVULSION [None]
  - DRUG DOSE OMISSION [None]
  - EYE ROLLING [None]
  - FALL [None]
  - INSOMNIA [None]
  - TREATMENT NONCOMPLIANCE [None]
